FAERS Safety Report 8770078 (Version 2)
Quarter: 2012Q4

REPORT INFORMATION
  Report Type: 
  Country: JP (occurrence: JP)
  Receive Date: 20120905
  Receipt Date: 20121212
  Transmission Date: 20130627
  Serious: Yes (Other)
  Sender: FDA-Public Use
  Company Number: JP-009507513-1207JPN007345

PATIENT
  Age: 69 Year
  Sex: Male
  Weight: 66 kg

DRUGS (9)
  1. PEGINTRON [Suspect]
     Indication: CHRONIC HEPATITIS C
     Dosage: 1.5 Microgram per kilogram,daily dose unknown
     Route: 058
     Dates: start: 20120518
  2. PEGINTRON [Suspect]
     Dosage: 100 Microgram per kilogram,daily dose unknown
     Route: 058
  3. PEGINTRON [Suspect]
     Dosage: 1.2 Microgram per kilogram,daily dose unknown
     Route: 058
  4. PEGINTRON [Suspect]
     Dosage: 100 microgram,daily dose unknown
     Route: 058
     Dates: end: 20121026
  5. REBETOL [Suspect]
     Indication: HEPATITIS C
     Dosage: 800 mg, qd
     Route: 048
  6. REBETOL [Suspect]
     Dosage: 400 mg, qd
     Route: 048
  7. REBETOL [Suspect]
     Dosage: 800 mg, qd
     Route: 048
     Dates: end: 20121002
  8. TELAVIC [Suspect]
     Indication: HEPATITIS C
     Dosage: 1500 mg, qd
     Route: 048
     Dates: start: 20120518, end: 20120527
  9. TELAVIC [Suspect]
     Dosage: 750 mg, qd
     Route: 048
     Dates: start: 20120528, end: 20120810

REACTIONS (3)
  - Rash [Not Recovered/Not Resolved]
  - Rash [Recovering/Resolving]
  - Rash [Recovered/Resolved]
